FAERS Safety Report 8992857 (Version 1)
Quarter: 2013Q1

REPORT INFORMATION
  Report Type: Spontaneous
  Country: US (occurrence: US)
  Receive Date: 20130102
  Receipt Date: 20130102
  Transmission Date: 20140127
  Serious: Yes (Other)
  Sender: FDA-Public Use
  Company Number: US-ELI_LILLY_AND_COMPANY-US201212007517

PATIENT
  Sex: Female

DRUGS (2)
  1. HUMALOG LISPRO [Suspect]
     Dosage: 50 U, BID
  2. LANTUS [Concomitant]
     Dosage: 50 U, EACH EVENING

REACTIONS (3)
  - Retinal haemorrhage [Unknown]
  - Intraocular pressure increased [Unknown]
  - Visual impairment [Not Recovered/Not Resolved]
